FAERS Safety Report 5503373-1 (Version None)
Quarter: 2007Q4

REPORT INFORMATION
  Report Type: 
  Country: None (occurrence: None)
  Receive Date: 20071031
  Receipt Date: 20071025
  Transmission Date: 20080405
  Serious: Yes (Other)
  Sender: FDA-Public Use
  Company Number: JP-BOEHRINGER INGELHEIM PHARMACEUTICALS, INC.-2007-BP-22865NB

PATIENT
  Sex: Female
  Weight: 38 kg

DRUGS (3)
  1. MICARDIS [Suspect]
     Indication: HYPERTENSION
     Route: 048
     Dates: start: 20070629, end: 20070731
  2. CONIEL [Concomitant]
     Indication: HYPERTENSION
     Route: 048
     Dates: start: 20070731
  3. EXCEGRAN [Concomitant]
     Indication: EPILEPSY
     Route: 048
     Dates: start: 20070512

REACTIONS (1)
  - MYOGLOBINAEMIA [None]
